FAERS Safety Report 23775589 (Version 2)
Quarter: 2024Q2

REPORT INFORMATION
  Report Type: Spontaneous
  Country: JP (occurrence: JP)
  Receive Date: 20240423
  Receipt Date: 20240430
  Transmission Date: 20240716
  Serious: Yes (Other)
  Sender: FDA-Public Use
  Company Number: JP-BRISTOL-MYERS SQUIBB COMPANY-2024-054839

PATIENT
  Age: 77 Year
  Sex: Male

DRUGS (9)
  1. YERVOY [Suspect]
     Active Substance: IPILIMUMAB
     Indication: Non-small cell lung cancer recurrent
     Dosage: THE FIRST AND SECOND COURSES: CHEMOTHERAPY + IPILIMUMAB AND NIVOLUMAB?FROM THE THIRD COURSE, ONLY IP
     Route: 041
     Dates: start: 202212, end: 202312
  2. OPDIVO [Suspect]
     Active Substance: NIVOLUMAB
     Indication: Non-small cell lung cancer recurrent
     Dosage: THE FIRST AND SECOND COURSES: CHEMOTHERAPY + IPILIMUMAB AND NIVOLUMAB?FROM THE THIRD COURSE, ONLY IP
     Route: 041
     Dates: start: 202212, end: 202312
  3. OLODATEROL HYDROCHLORIDE\TIOTROPIUM BROMIDE MONOHYDRATE [Concomitant]
     Active Substance: OLODATEROL HYDROCHLORIDE\TIOTROPIUM BROMIDE MONOHYDRATE
     Indication: Product used for unknown indication
     Route: 048
  4. CARBOCYSTEINE [Concomitant]
     Active Substance: CARBOCYSTEINE
     Indication: Product used for unknown indication
     Route: 048
  5. FUDOSTEINE [Concomitant]
     Active Substance: FUDOSTEINE
     Indication: Product used for unknown indication
     Route: 048
  6. PANVITAN [ASCORBIC ACID;DEXPANTHENOL;ERGOCALCIFEROL;NICOTINAMIDE;PYRID [Concomitant]
     Indication: Product used for unknown indication
     Route: 048
  7. ICOSAPENT [Concomitant]
     Active Substance: ICOSAPENT
     Indication: Product used for unknown indication
     Route: 048
  8. TENELIGLIPTIN [Concomitant]
     Active Substance: TENELIGLIPTIN
     Indication: Product used for unknown indication
     Route: 048
  9. LOSARTAN POTASSIUM [Concomitant]
     Active Substance: LOSARTAN POTASSIUM
     Indication: Product used for unknown indication
     Route: 048

REACTIONS (11)
  - Adrenocorticotropic hormone deficiency [Recovered/Resolved]
  - Autoimmune pancreatitis [Unknown]
  - Diabetes mellitus [Unknown]
  - Nocturia [Unknown]
  - Dysuria [Unknown]
  - Cystitis [Unknown]
  - Pyuria [Not Recovered/Not Resolved]
  - Protein urine present [Unknown]
  - Haematuria [Unknown]
  - Nephrotic syndrome [Unknown]
  - Pollakiuria [Unknown]
